FAERS Safety Report 22171544 (Version 1)
Quarter: 2023Q2

REPORT INFORMATION
  Report Type: Spontaneous
  Country: US (occurrence: US)
  Receive Date: 20230404
  Receipt Date: 20230404
  Transmission Date: 20230722
  Serious: Yes (Hospitalization)
  Sender: FDA-Public Use
  Company Number: US-PFIZER INC-202300141066

PATIENT
  Age: 73 Year
  Sex: Male

DRUGS (1)
  1. IBRANCE [Interacting]
     Active Substance: PALBOCICLIB
     Dosage: TAKE 1 TABLET DAILY FOR 21 DAYS ON, FOLLOWED BY 7 DAYS OFF

REACTIONS (2)
  - Fungal infection [Not Recovered/Not Resolved]
  - Drug interaction [Unknown]

NARRATIVE: CASE EVENT DATE: 20230108
